FAERS Safety Report 9502261 (Version 1)
Quarter: 2013Q3

REPORT INFORMATION
  Report Type: Spontaneous
  Country: AU (occurrence: AU)
  Receive Date: 20130906
  Receipt Date: 20130906
  Transmission Date: 20140515
  Serious: Yes (Hospitalization)
  Sender: FDA-Public Use
  Company Number: AU-BIOGENIDEC-2013BI083688

PATIENT
  Age: 51 Year
  Sex: Male

DRUGS (2)
  1. AVONEX [Suspect]
     Indication: MULTIPLE SCLEROSIS
     Route: 030
     Dates: start: 20130828, end: 20130830
  2. PROZAC [Concomitant]

REACTIONS (5)
  - Blood pressure increased [Recovered/Resolved]
  - Vision blurred [Unknown]
  - Feeling hot [Unknown]
  - Malaise [Unknown]
  - Stress [Unknown]
